FAERS Safety Report 9009771 (Version 1)
Quarter: 2013Q1

REPORT INFORMATION
  Report Type: Report from Study
  Country: JP (occurrence: JP)
  Receive Date: 20130110
  Receipt Date: 20130110
  Transmission Date: 20140127
  Serious: Yes (Hospitalization, Other)
  Sender: FDA-Public Use
  Company Number: JP-PFIZER INC-2013005791

PATIENT
  Age: 81 Year
  Sex: Female

DRUGS (12)
  1. AZULFIDINE EN [Suspect]
     Indication: RHEUMATOID ARTHRITIS
     Dosage: 1000 MG, 1X/DAY
     Route: 048
     Dates: start: 20080909
  2. TOCILIZUMAB [Suspect]
     Indication: RHEUMATOID ARTHRITIS
     Dosage: 272 MG, 1 IN 4 WEEKS
     Route: 041
     Dates: start: 20080814, end: 20080814
  3. TOCILIZUMAB [Suspect]
     Dosage: 280 MG, 1 IN 4 WEEKS
     Route: 041
     Dates: start: 20080908, end: 20080908
  4. TOCILIZUMAB [Suspect]
     Dosage: 304 MG, 1 IN 4 WEEKS
     Route: 041
     Dates: start: 20081225, end: 20110316
  5. PREDNISOLONE [Concomitant]
     Indication: RHEUMATOID ARTHRITIS
     Dosage: 2 MG, 1X/DAY
     Route: 048
     Dates: start: 20080909, end: 20090120
  6. PREDNISOLONE [Concomitant]
     Dosage: 1 MG, 1X/DAY
     Route: 048
     Dates: start: 20090121, end: 2010
  7. FOSAMAX [Concomitant]
     Indication: OSTEOPOROSIS
     Dosage: 5 MG, WEEKLY
     Route: 048
  8. FOSAMAX [Concomitant]
     Dosage: 35 MG, WEEKLY
     Route: 048
  9. LOXONIN [Concomitant]
     Indication: RHEUMATOID ARTHRITIS
     Dosage: 180 MG, 1X/DAY
     Route: 048
     Dates: end: 20090120
  10. LOXONIN [Concomitant]
     Dosage: 120 MG, 1X/DAY
     Route: 048
     Dates: start: 20090121
  11. CIMETIDINE [Concomitant]
     Dosage: 400 MG, 1X/DAY
     Route: 048
  12. ALDACTONE-A [Concomitant]
     Dosage: 25 MG, 1X/DAY
     Route: 048

REACTIONS (1)
  - Pneumonia [Recovered/Resolved]
